FAERS Safety Report 8368936-7 (Version None)
Quarter: 2012Q2

REPORT INFORMATION
  Report Type: 
  Country: None (occurrence: None)
  Receive Date: 20120516
  Receipt Date: 20120516
  Transmission Date: 20120825
  Serious: Yes (Hospitalization)
  Sender: FDA-Public Use
  Company Number: None

PATIENT
  Sex: Male

DRUGS (1)
  1. ENBREL [Suspect]
     Dosage: 50MG QWEEK SQ
     Route: 058
     Dates: start: 20110323, end: 20120228

REACTIONS (3)
  - DIVERTICULITIS [None]
  - KIDNEY INFECTION [None]
  - DECREASED IMMUNE RESPONSIVENESS [None]
